FAERS Safety Report 25498844 (Version 2)
Quarter: 2025Q3

REPORT INFORMATION
  Report Type: Spontaneous
  Country: US (occurrence: US)
  Receive Date: 20250701
  Receipt Date: 20250822
  Transmission Date: 20251020
  Serious: No
  Sender: BAYER HEALTHCARE PHARMACEUTICALS INC.
  Company Number: US-BAYER-2025A085567

PATIENT
  Age: 53 Year
  Sex: Female

DRUGS (1)
  1. CLIMARA PRO [Suspect]
     Active Substance: ESTRADIOL\LEVONORGESTREL
     Indication: Menopausal symptoms
     Dosage: 1 DF, QD
     Route: 062
     Dates: start: 20250515

REACTIONS (3)
  - Maternal exposure during pregnancy [None]
  - Device physical property issue [None]
  - Panic reaction [None]

NARRATIVE: CASE EVENT DATE: 20250101
